FAERS Safety Report 10290252 (Version 3)
Quarter: 2015Q3

REPORT INFORMATION
  Report Type: Spontaneous
  Country: US (occurrence: US)
  Receive Date: 20140710
  Receipt Date: 20150811
  Transmission Date: 20151125
  Serious: Yes (Hospitalization, Disabling, Other)
  Sender: FDA-Public Use
  Company Number: US-MERCK-1407USA004923

PATIENT
  Sex: Male
  Weight: 117.91 kg

DRUGS (5)
  1. BYETTA [Suspect]
     Active Substance: EXENATIDE
     Dosage: 10 MICROGRAM, BID
     Route: 058
  2. BYETTA [Suspect]
     Active Substance: EXENATIDE
     Indication: TYPE 2 DIABETES MELLITUS
     Dosage: 5 MICROGRAM, BID
     Route: 058
  3. JANUVIA [Suspect]
     Active Substance: SITAGLIPTIN PHOSPHATE
     Indication: TYPE 2 DIABETES MELLITUS
     Route: 048
  4. JANUMET [Suspect]
     Active Substance: METFORMIN HYDROCHLORIDE\SITAGLIPTIN PHOSPHATE
     Indication: TYPE 2 DIABETES MELLITUS
     Route: 048
  5. VICTOZA [Suspect]
     Active Substance: LIRAGLUTIDE
     Indication: TYPE 2 DIABETES MELLITUS

REACTIONS (30)
  - Knee arthroplasty [Unknown]
  - Cholecystectomy [Unknown]
  - Gastritis [Unknown]
  - Gastric mucosal lesion [Unknown]
  - Muscle atrophy [Unknown]
  - Chemotherapy [Unknown]
  - Nephrolithiasis [Unknown]
  - Spinal osteoarthritis [Unknown]
  - Iron deficiency anaemia [Unknown]
  - Hiatus hernia [Unknown]
  - Exostosis [Unknown]
  - Haemorrhoids [Unknown]
  - Venous thrombosis [Unknown]
  - Full blood count decreased [Unknown]
  - Nephrolithiasis [Unknown]
  - Prostatic calcification [Unknown]
  - Renal cyst [Unknown]
  - Nephrolithiasis [Unknown]
  - Hepatic steatosis [Unknown]
  - Blood testosterone decreased [Unknown]
  - Intrathecal pump insertion [Unknown]
  - Knee arthroplasty [Unknown]
  - Arthritis [Not Recovered/Not Resolved]
  - Gynaecomastia [Unknown]
  - Prostatomegaly [Unknown]
  - Umbilical hernia [Unknown]
  - Exostosis [Unknown]
  - Helicobacter infection [Unknown]
  - Adenocarcinoma pancreas [Not Recovered/Not Resolved]
  - Varicose vein [Unknown]

NARRATIVE: CASE EVENT DATE: 2009
